FAERS Safety Report 16166347 (Version 1)
Quarter: 2019Q2

REPORT INFORMATION
  Report Type: Report from Study
  Country: US (occurrence: US)
  Receive Date: 20190406
  Receipt Date: 20190406
  Transmission Date: 20190711
  Serious: No
  Sender: FDA-Public Use
  Company Number: US-ROCHE-2295423

PATIENT
  Sex: Female
  Weight: 64.01 kg

DRUGS (4)
  1. BACLOFEN. [Concomitant]
     Active Substance: BACLOFEN
     Dosage: YES
     Route: 065
  2. BACLOFEN. [Concomitant]
     Active Substance: BACLOFEN
     Dosage: AT BEDTIME
     Route: 065
  3. OCREVUS [Suspect]
     Active Substance: OCRELIZUMAB
     Indication: PRIMARY PROGRESSIVE MULTIPLE SCLEROSIS
     Route: 065
     Dates: start: 201705
  4. MELATONIN [Concomitant]
     Active Substance: MELATONIN
     Dosage: AT BEDTIME
     Route: 065

REACTIONS (4)
  - Malaise [Recovered/Resolved]
  - Muscular weakness [Not Recovered/Not Resolved]
  - Nasopharyngitis [Recovered/Resolved]
  - Condition aggravated [Recovered/Resolved]
